FAERS Safety Report 12873809 (Version 1)
Quarter: 2016Q4

REPORT INFORMATION
  Report Type: Report from Study
  Country: CA (occurrence: CA)
  Receive Date: 20161021
  Receipt Date: 20161021
  Transmission Date: 20170207
  Serious: Yes (Other)
  Sender: FDA-Public Use
  Company Number: CA-REGENERON PHARMACEUTICALS, INC.-2016-22997

PATIENT

DRUGS (2)
  1. EYLEA [Suspect]
     Active Substance: AFLIBERCEPT
     Indication: NEOVASCULAR AGE-RELATED MACULAR DEGENERATION
     Dosage: 1 DF, Q2MON
  2. EYLEA [Suspect]
     Active Substance: AFLIBERCEPT
     Indication: RETINAL DETACHMENT
     Dosage: 1 DF, Q1MON
     Route: 031

REACTIONS (1)
  - Cystitis [Unknown]
